FAERS Safety Report 26005484 (Version 1)
Quarter: 2025Q4

REPORT INFORMATION
  Report Type: Spontaneous
  Country: US (occurrence: US)
  Receive Date: 20251106
  Receipt Date: 20251106
  Transmission Date: 20260117
  Serious: Yes (Hospitalization)
  Sender: Onesource Specialty Pharma
  Company Number: US-STRIDES ARCOLAB LIMITED-2025OS001119

PATIENT
  Age: 38 Year
  Sex: Male

DRUGS (3)
  1. METHOHEXITAL SODIUM [Suspect]
     Active Substance: METHOHEXITAL SODIUM
     Indication: Sedative therapy
     Dosage: 100 MILLIGRAM
     Route: 013
  2. SUCCINYLCHOLINE [Suspect]
     Active Substance: SUCCINYLCHOLINE
     Indication: Sedative therapy
     Dosage: 80 MILLIGRAM
     Route: 013
  3. DEXMEDETOMIDINE [Suspect]
     Active Substance: DEXMEDETOMIDINE
     Indication: Sedative therapy
     Dosage: 20 MILLIGRAM
     Route: 013

REACTIONS (2)
  - Injection site pain [Unknown]
  - Medication error [Unknown]
